FAERS Safety Report 8855448 (Version 2)
Quarter: 2013Q1

REPORT INFORMATION
  Report Type: Report from Study
  Country: DE (occurrence: DE)
  Receive Date: 20121023
  Receipt Date: 20130327
  Transmission Date: 20140127
  Serious: Yes (Other)
  Sender: FDA-Public Use
  Company Number: DE-009507513-1210DEU008080

PATIENT
  Sex: 0

DRUGS (2)
  1. MK-7365 [Suspect]
     Indication: MALIGNANT GLIOMA
     Dosage: 50-60MG/M2 DAY 1 5/7
     Route: 048
  2. LOMUSTINE [Concomitant]
     Indication: MALIGNANT GLIOMA
     Dosage: 40 MG FIX DOSE AT DAY 6/7

REACTIONS (1)
  - Haematotoxicity [Unknown]
